FAERS Safety Report 9161898 (Version 4)
Quarter: 2013Q2

REPORT INFORMATION
  Report Type: Spontaneous
  Country: US (occurrence: None)
  Receive Date: 20130220
  Receipt Date: 20130531
  Transmission Date: 20140414
  Serious: Yes (Hospitalization, Other)
  Sender: FDA-Public Use
  Company Number: JPI-P-029726

PATIENT
  Age: 49 Year
  Sex: Female

DRUGS (14)
  1. XYREM ?(500 MILLIGRAM/MILLILITERS, SOLUTION)(SODIUM OXYBATE) [Suspect]
     Indication: SOMNOLENCE
     Dosage: 4.5 GM (2.25 GM, 2 IN 1 D), ORAL
     Route: 048
     Dates: start: 20111109
  2. XYREM ?(500 MILLIGRAM/MILLILITERS, SOLUTION)(SODIUM OXYBATE) [Suspect]
     Indication: CATAPLEXY
     Dosage: 4.5 GM (2.25 GM, 2 IN 1 D), ORAL
     Route: 048
     Dates: start: 20111109
  3. ESOMEPRAZOLE MAGNESIUM [Concomitant]
  4. HYDROXYCHLOROQUINE [Concomitant]
  5. MELOXICAM [Concomitant]
  6. AMPHETAMINE, DEXTROAMPHETAMINE MIXED SALTS [Concomitant]
  7. BUPROPION [Concomitant]
  8. LEVOTHYROXINE [Concomitant]
  9. OXYMORPHONE HYDROCHLORIDE [Concomitant]
  10. TOLTERODINE TARTRATE [Concomitant]
  11. VITAMIN D [Concomitant]
  12. OXYCODONE [Concomitant]
  13. PREGABALIN [Concomitant]
  14. RIZATRIPTAN BENZOATE [Concomitant]

REACTIONS (7)
  - Cerebrospinal fluid leakage [None]
  - Hypoaesthesia [None]
  - Nerve injury [None]
  - Multiple sclerosis [None]
  - Insomnia [None]
  - Somnolence [None]
  - Amnesia [None]
